FAERS Safety Report 21458639 (Version 5)
Quarter: 2024Q2

REPORT INFORMATION
  Report Type: Spontaneous
  Country: US (occurrence: US)
  Receive Date: 20221014
  Receipt Date: 20240507
  Transmission Date: 20240716
  Serious: No
  Sender: FDA-Public Use
  Company Number: US-PFIZER INC-2021640881

PATIENT
  Age: 61 Year
  Sex: Female
  Weight: 62.132 kg

DRUGS (6)
  1. XELJANZ XR [Suspect]
     Active Substance: TOFACITINIB CITRATE
     Indication: Oligoarthritis
     Dosage: 11 MG, 1X/DAY
     Route: 048
     Dates: start: 2018
  2. XELJANZ XR [Suspect]
     Active Substance: TOFACITINIB CITRATE
     Indication: Rheumatoid arthritis
     Dosage: 11 MG, DAILY
     Route: 048
     Dates: start: 2020
  3. XELJANZ XR [Suspect]
     Active Substance: TOFACITINIB CITRATE
     Dosage: 11 MG, 1X/DAY
     Route: 048
     Dates: start: 2019
  4. DICLOFENAC POTASSIUM [Concomitant]
     Active Substance: DICLOFENAC POTASSIUM
     Dosage: 50 MG
  5. LEVOXYL [Concomitant]
     Active Substance: LEVOTHYROXINE SODIUM
     Dosage: 75 UG
  6. FLUARIX NOS [Concomitant]
     Active Substance: INFLUENZA VIRUS VACCINE
     Dosage: FLUARIX QUAD 2023-2024

REACTIONS (11)
  - COVID-19 [Recovered/Resolved]
  - Musculoskeletal stiffness [Recovered/Resolved]
  - Swelling [Unknown]
  - Arthralgia [Recovering/Resolving]
  - Arthropathy [Unknown]
  - Respiratory tract infection [Recovered/Resolved]
  - Pain in extremity [Recovered/Resolved]
  - Arthralgia [Recovered/Resolved]
  - Trigger points [Recovered/Resolved]
  - Wrong technique in product usage process [Unknown]
  - Intentional product misuse [Unknown]

NARRATIVE: CASE EVENT DATE: 20231101
